FAERS Safety Report 23476215 (Version 1)
Quarter: 2024Q1

REPORT INFORMATION
  Report Type: Report from Study
  Country: US (occurrence: US)
  Receive Date: 20240204
  Receipt Date: 20240204
  Transmission Date: 20240410
  Serious: No
  Sender: FDA-Public Use
  Company Number: US-EXELIXIS-CABO-23062318

PATIENT
  Sex: Female

DRUGS (12)
  1. CABOMETYX [Suspect]
     Active Substance: CABOZANTINIB S-MALATE
     Indication: Product used for unknown indication
     Dosage: 20 MG
  2. OPDIVO [Concomitant]
     Active Substance: NIVOLUMAB
  3. CINNAMON [Concomitant]
     Active Substance: CINNAMON
  4. COMPAZINE [Concomitant]
     Active Substance: PROCHLORPERAZINE MALEATE
  5. DIGOXIN [Concomitant]
     Active Substance: DIGOXIN
  6. LASIX [Concomitant]
     Active Substance: FUROSEMIDE
  7. LOVENOX [Concomitant]
     Active Substance: ENOXAPARIN SODIUM
  8. MELATONIN [Concomitant]
     Active Substance: MELATONIN
  9. PRAVACHOL [Concomitant]
     Active Substance: PRAVASTATIN SODIUM
  10. SENNA [Concomitant]
     Active Substance: SENNA LEAF\SENNOSIDES\SENNOSIDES A AND B
  11. SYMBICORT [Concomitant]
     Active Substance: BUDESONIDE\FORMOTEROL FUMARATE DIHYDRATE
  12. ZOFRAN [Concomitant]
     Active Substance: ONDANSETRON HYDROCHLORIDE

REACTIONS (1)
  - Cardiac disorder [Unknown]
